FAERS Safety Report 22138999 (Version 1)
Quarter: 2023Q1

REPORT INFORMATION
  Report Type: Report from Study
  Country: GB (occurrence: GB)
  Receive Date: 20230327
  Receipt Date: 20230327
  Transmission Date: 20230417
  Serious: Yes (Other)
  Sender: FDA-Public Use
  Company Number: GB-CELLTRION INC.-2023GB006109

PATIENT

DRUGS (9)
  1. BEVACIZUMAB [Suspect]
     Active Substance: BEVACIZUMAB
     Indication: Hepatocellular carcinoma
     Dosage: 800 MILLIGRAM
     Dates: start: 20230120
  2. ATEZOLIZUMAB [Suspect]
     Active Substance: ATEZOLIZUMAB
     Indication: Hepatocellular carcinoma
     Dosage: 1200 MILLIGRAM
     Route: 042
     Dates: start: 20230120
  3. CARVEDILOL [Concomitant]
     Active Substance: CARVEDILOL
     Dosage: 12.5 MILLIGRAM, QD (CUMULATIVE DOSE TO FIRST REACTION: 950 MG)
     Dates: start: 20221118
  4. CHOLECALCIFEROL [Concomitant]
     Active Substance: CHOLECALCIFEROL
     Dosage: DOSE: 1, QD, 400 UNITS
     Dates: start: 20220926
  5. ENTECAVIR [Concomitant]
     Active Substance: ENTECAVIR
     Dosage: 1 MILLIGRAM, QD (CUMULATIVE DOSE TO FIRST REACTION: 225.04167 MG)
     Dates: start: 20220622
  6. LEVEMIR [Concomitant]
     Active Substance: INSULIN DETEMIR
     Dosage: DOSE: 1, AS NECESSARY, 3MLS PRE-FILLED SYRINGE 100UI/ML
     Dates: start: 20220331
  7. NOVORAPID [Concomitant]
     Active Substance: INSULIN ASPART
     Dosage: DOSE: 1, AS NECESSARY, 3MLS PRE-FILLED SYRINGE 100UI/ML
     Dates: start: 20220331
  8. OMEPRAZOLE [Concomitant]
     Active Substance: OMEPRAZOLE
     Dosage: 20 MILLIGRAM, QD (CUMULATIVE DOSE TO FIRST REACTION: 2580.8333 MG)
     Dates: start: 20220926
  9. SPIRONOLACTONE [Concomitant]
     Active Substance: SPIRONOLACTONE
     Dosage: 50 MILLIGRAM, QD (CUMULATIVE DOSE TO FIRST REACTION: 9752.083 MG)
     Dates: start: 20220722

REACTIONS (3)
  - Diarrhoea [Recovered/Resolved]
  - Hypertension [Not Recovered/Not Resolved]
  - Off label use [Unknown]

NARRATIVE: CASE EVENT DATE: 20230202
